FAERS Safety Report 6114465-0 (Version None)
Quarter: 2009Q1

REPORT INFORMATION
  Report Type: 
  Country: None (occurrence: None)
  Receive Date: 20090313
  Receipt Date: 20090302
  Transmission Date: 20090719
  Serious: Yes (Other)
  Sender: FDA-Public Use
  Company Number: US-AMGEN-US336337

PATIENT
  Sex: Female

DRUGS (5)
  1. NPLATE [Suspect]
     Indication: IDIOPATHIC THROMBOCYTOPENIC PURPURA
     Route: 065
     Dates: start: 20080929, end: 20081222
  2. CORTICOSTEROIDS [Concomitant]
     Dates: start: 20020806
  3. IMMUNOGLOBULINS [Concomitant]
     Dates: start: 20020806
  4. PREDNISONE [Concomitant]
  5. GAMMAGARD [Concomitant]

REACTIONS (2)
  - DRUG INEFFECTIVE [None]
  - THROMBOCYTOPENIA [None]
